FAERS Safety Report 18086057 (Version 1)
Quarter: 2020Q3

REPORT INFORMATION
  Report Type: Spontaneous
  Country: US (occurrence: US)
  Receive Date: 20200728
  Receipt Date: 20200728
  Transmission Date: 20201103
  Serious: No
  Sender: FDA-Public Use
  Company Number: None

PATIENT
  Sex: Female

DRUGS (8)
  1. CEPHALEXIN. [Concomitant]
     Active Substance: CEPHALEXIN
  2. DILTIAZEM. [Concomitant]
     Active Substance: DILTIAZEM
  3. CLOPIDOGREL [Concomitant]
     Active Substance: CLOPIDOGREL BISULFATE
  4. GABAPENTIN. [Concomitant]
     Active Substance: GABAPENTIN
  5. HUMIRA [Suspect]
     Active Substance: ADALIMUMAB
     Indication: PRODUCT USED FOR UNKNOWN INDICATION
     Dosage: 1 PEN (40MG) QOWK SQ
     Route: 058
     Dates: start: 20180310
  6. ALBUTEROL AER [Concomitant]
     Active Substance: ALBUTEROL
  7. DIGOXIN. [Concomitant]
     Active Substance: DIGOXIN
  8. ASPIRIN. [Concomitant]
     Active Substance: ASPIRIN

REACTIONS (2)
  - Pneumonia [None]
  - Sepsis [None]
